FAERS Safety Report 4488100-1 (Version None)
Quarter: 2004Q4

REPORT INFORMATION
  Report Type: 
  Country: None (occurrence: None)
  Receive Date: 20041022
  Receipt Date: 20041018
  Transmission Date: 20050328
  Serious: Yes (Hospitalization, Other)
  Sender: FDA-Public Use
  Company Number: HQWYE835118OCT04

PATIENT
  Age: 3 Year
  Sex: Male

DRUGS (5)
  1. CHILDREN'S ADVIL [Suspect]
     Indication: PYREXIA
     Dosage: ORAL
     Route: 048
     Dates: start: 20040914
  2. ACETAMINOPHEN [Concomitant]
  3. BISEPTINE (BENZALKONIUM CHLORIDE/BENZYL ALCOHOL/CHLORHEXIDINE) [Concomitant]
  4. EOSINE (EOSINE) [Concomitant]
  5. PRIMALAN (MEQUITAZINE) [Concomitant]

REACTIONS (7)
  - C-REACTIVE PROTEIN INCREASED [None]
  - CONDITION AGGRAVATED [None]
  - DERMATITIS EXFOLIATIVE [None]
  - HAEMOGLOBIN DECREASED [None]
  - SELF-MEDICATION [None]
  - SUPERINFECTION [None]
  - VARICELLA [None]
